FAERS Safety Report 14367403 (Version 1)
Quarter: 2018Q1

REPORT INFORMATION
  Report Type: Spontaneous
  Country: US (occurrence: US)
  Receive Date: 20180109
  Receipt Date: 20180109
  Transmission Date: 20180509
  Serious: No
  Sender: FDA-Public Use
  Company Number: US-TARO-2017TAR00912

PATIENT
  Age: 60 Year
  Sex: Female

DRUGS (1)
  1. METRONIDAZOLE GEL USP, 1% [Suspect]
     Active Substance: METRONIDAZOLE
     Dosage: UNK
     Route: 061
     Dates: start: 2017, end: 2017

REACTIONS (5)
  - Malabsorption from application site [Recovered/Resolved]
  - Product quality issue [Recovered/Resolved]
  - Application site pain [Recovered/Resolved]
  - Product substitution issue [Recovered/Resolved]
  - Reaction to excipient [Recovered/Resolved]

NARRATIVE: CASE EVENT DATE: 2017
